FAERS Safety Report 11239380 (Version 2)
Quarter: 2015Q3

REPORT INFORMATION
  Report Type: Spontaneous
  Country: US (occurrence: US)
  Receive Date: 20150706
  Receipt Date: 20150722
  Transmission Date: 20151125
  Serious: Yes (Hospitalization, Other)
  Sender: FDA-Public Use
  Company Number: US-TEVA-575225USA

PATIENT
  Age: 73 Year
  Sex: Male

DRUGS (1)
  1. SYNRIBO [Suspect]
     Active Substance: OMACETAXINE MEPESUCCINATE
     Indication: NEOPLASM MALIGNANT
     Dosage: HOME ADMINISTRATION
     Route: 058
     Dates: start: 20150625

REACTIONS (5)
  - Oxygen saturation decreased [Unknown]
  - Pyrexia [Not Recovered/Not Resolved]
  - Neutropenia [Unknown]
  - Injection site pain [Not Recovered/Not Resolved]
  - Injection site erythema [Not Recovered/Not Resolved]

NARRATIVE: CASE EVENT DATE: 20150625
